FAERS Safety Report 14325894 (Version 1)
Quarter: 2017Q4

REPORT INFORMATION
  Report Type: Spontaneous
  Country: FR (occurrence: FR)
  Receive Date: 20171226
  Receipt Date: 20171226
  Transmission Date: 20180321
  Serious: Yes (Hospitalization, Other)
  Sender: FDA-Public Use
  Company Number: FR-MYLANLABS-2017M1082125

PATIENT
  Age: 74 Year
  Sex: Male
  Weight: 63 kg

DRUGS (1)
  1. VORICONAZOLE. [Suspect]
     Active Substance: VORICONAZOLE
     Indication: CANDIDA INFECTION
     Route: 041
     Dates: start: 20171109, end: 20171121

REACTIONS (2)
  - Electrocardiogram QT prolonged [Recovered/Resolved]
  - Electrocardiogram ST segment depression [Recovered/Resolved with Sequelae]

NARRATIVE: CASE EVENT DATE: 20171120
